FAERS Safety Report 13277496 (Version 1)
Quarter: 2017Q1

REPORT INFORMATION
  Report Type: Spontaneous
  Country: US (occurrence: US)
  Receive Date: 20170228
  Receipt Date: 20170228
  Transmission Date: 20170428
  Serious: Yes (Hospitalization)
  Sender: FDA-Public Use
  Company Number: US-ASTRAZENECA-2017SE20649

PATIENT
  Sex: Female
  Weight: 83.9 kg

DRUGS (6)
  1. PRILOSEC [Suspect]
     Active Substance: OMEPRAZOLE MAGNESIUM
     Route: 048
  2. SEROQUEL [Suspect]
     Active Substance: QUETIAPINE FUMARATE
     Indication: BIPOLAR DISORDER
     Route: 048
     Dates: start: 2009
  3. SEROQUEL [Suspect]
     Active Substance: QUETIAPINE FUMARATE
     Indication: BIPOLAR DISORDER
     Route: 048
     Dates: start: 2009
  4. KLONOPIN [Concomitant]
     Active Substance: CLONAZEPAM
     Indication: PANIC ATTACK
     Dosage: 1MG IN THE MORNING AND 2MG AT NIGHT
     Route: 048
  5. LAMOTRIGINE. [Concomitant]
     Active Substance: LAMOTRIGINE
     Indication: AFFECTIVE DISORDER
     Dosage: 100MG IN THE MORNING AND 150MG AT BED TIME
     Route: 048
  6. SIMVASTATIN. [Concomitant]
     Active Substance: SIMVASTATIN
     Indication: BLOOD CHOLESTEROL ABNORMAL
     Route: 048

REACTIONS (16)
  - Gait disturbance [Unknown]
  - Weight increased [Unknown]
  - Body temperature abnormal [Unknown]
  - Muscle rigidity [Unknown]
  - Nausea [Unknown]
  - Dyspepsia [Unknown]
  - Burning sensation [Unknown]
  - Dizziness [Unknown]
  - Neuroleptic malignant syndrome [Unknown]
  - Blood pressure increased [Unknown]
  - Activities of daily living impaired [Unknown]
  - Electrolyte imbalance [Unknown]
  - Regurgitation [Unknown]
  - Depressed mood [Unknown]
  - Feeling abnormal [Unknown]
  - Hyponatraemia [Unknown]
